FAERS Safety Report 16222257 (Version 7)
Quarter: 2025Q4

REPORT INFORMATION
  Report Type: Report from Study
  Country: GB (occurrence: GB)
  Receive Date: 20190422
  Receipt Date: 20251204
  Transmission Date: 20260118
  Serious: Yes (Hospitalization, Other)
  Sender: NOVARTIS
  Company Number: PHHY2019GB089768

PATIENT
  Sex: Male

DRUGS (6)
  1. COSENTYX [Suspect]
     Active Substance: SECUKINUMAB
     Indication: Psoriatic arthropathy
     Dosage: 150 MG, QMO (PRE-FILLED PEN)
     Route: 058
     Dates: start: 20181128
  2. COSENTYX [Suspect]
     Active Substance: SECUKINUMAB
     Indication: Ankylosing spondylitis
     Dosage: 150 MG, QMO (PRE-FILLED PEN)
     Route: 058
     Dates: start: 2018
  3. COSENTYX [Suspect]
     Active Substance: SECUKINUMAB
     Dosage: 150 MG, QMO
     Route: 058
  4. NEFOPAM [Concomitant]
     Active Substance: NEFOPAM
     Indication: Product used for unknown indication
     Dosage: 30-60 MG
     Route: 048
  5. ETORICOXIB [Concomitant]
     Active Substance: ETORICOXIB
     Indication: Product used for unknown indication
     Dosage: 90 MG, QD
     Route: 048
  6. OMEPRAZOLE [Concomitant]
     Active Substance: OMEPRAZOLE
     Indication: Product used for unknown indication
     Dosage: 20 MG, QD
     Route: 048

REACTIONS (14)
  - Infection [Unknown]
  - Abscess limb [Unknown]
  - Localised infection [Unknown]
  - Incision site impaired healing [Unknown]
  - Groin abscess [Recovered/Resolved]
  - Rash [Recovered/Resolved]
  - Oral candidiasis [Recovered/Resolved]
  - Taste disorder [Unknown]
  - Regurgitation [Unknown]
  - Illness [Unknown]
  - Viral pharyngitis [Recovered/Resolved]
  - Influenza [Unknown]
  - Pharyngitis [Unknown]
  - Product dose omission issue [Unknown]

NARRATIVE: CASE EVENT DATE: 20181201
